FAERS Safety Report 8217962-7 (Version None)
Quarter: 2012Q1

REPORT INFORMATION
  Report Type: 
  Country: None (occurrence: None)
  Receive Date: 20120315
  Receipt Date: 20120314
  Transmission Date: 20120608
  Serious: Yes (Life-Threatening, Hospitalization)
  Sender: FDA-Public Use
  Company Number: TCI2012A01145

PATIENT
  Age: 70 Year
  Sex: Male

DRUGS (4)
  1. PREVPAC [Suspect]
     Dosage: PER ORAL
     Route: 048
     Dates: start: 20120223, end: 20120229
  2. FERROUS CITRATE [Concomitant]
  3. LANSOPRAZOLE [Suspect]
     Indication: GASTRIC ULCER HAEMORRHAGE
     Dates: start: 20120221, end: 20120223
  4. FESIN (SACCHARATED IRON OXIDE) [Concomitant]

REACTIONS (8)
  - ALANINE AMINOTRANSFERASE INCREASED [None]
  - AGRANULOCYTOSIS [None]
  - GASTRIC ULCER HAEMORRHAGE [None]
  - WHITE BLOOD CELL COUNT DECREASED [None]
  - CARDIO-RESPIRATORY ARREST [None]
  - DIARRHOEA [None]
  - ASPARTATE AMINOTRANSFERASE INCREASED [None]
  - LOSS OF CONSCIOUSNESS [None]
